FAERS Safety Report 8624429-0 (Version None)
Quarter: 2012Q3

REPORT INFORMATION
  Report Type: 
  Country: None (occurrence: None)
  Receive Date: 20120827
  Receipt Date: 20120817
  Transmission Date: 20120928
  Serious: Yes (Other)
  Sender: FDA-Public Use
  Company Number: US-BAYER-2012-086251

PATIENT
  Age: 71 Year
  Sex: Female

DRUGS (5)
  1. SPIRONOLACTONE [Concomitant]
     Dosage: 25 MG, OM
     Route: 048
  2. BETAPACE [Suspect]
     Indication: HYPERTENSION
     Dosage: 80 MG, QD
  3. BETAPACE [Suspect]
     Dosage: 40 MG, QD
  4. ASPIRIN [Concomitant]
  5. DRONEDARONE HCL [Concomitant]
     Dosage: 400 MG, BID
     Route: 048

REACTIONS (6)
  - SUICIDAL IDEATION [None]
  - EXTRASYSTOLES [None]
  - FATIGUE [None]
  - VOMITING [None]
  - HEART RATE INCREASED [None]
  - FEELING HOT [None]
